FAERS Safety Report 25042153 (Version 1)
Quarter: 2025Q1

REPORT INFORMATION
  Report Type: Spontaneous
  Country: CN (occurrence: CN)
  Receive Date: 20250305
  Receipt Date: 20250305
  Transmission Date: 20250409
  Serious: Yes (Hospitalization)
  Sender: ELI LILLY AND COMPANY
  Company Number: CN-Merck Healthcare KGaA-2025009478

PATIENT
  Age: 63 Year
  Sex: Female
  Weight: 68 kg

DRUGS (1)
  1. ERBITUX [Suspect]
     Active Substance: CETUXIMAB
     Indication: Hypopharyngeal cancer
     Dosage: 400 MG, WEEKLY (1/W)
     Route: 041
     Dates: start: 20241225, end: 20250210

REACTIONS (1)
  - Liver injury [Recovering/Resolving]

NARRATIVE: CASE EVENT DATE: 20250102
